FAERS Safety Report 18061130 (Version 5)
Quarter: 2021Q1

REPORT INFORMATION
  Report Type: Spontaneous
  Country: GB (occurrence: GB)
  Receive Date: 20200723
  Receipt Date: 20210316
  Transmission Date: 20210419
  Serious: Yes (Other)
  Sender: FDA-Public Use
  Company Number: GB-MYLANLABS-2020M1066229

PATIENT
  Age: 33 Year
  Sex: Male

DRUGS (1)
  1. CLOZARIL [Suspect]
     Active Substance: CLOZAPINE
     Indication: SCHIZOPHRENIA
     Dosage: UNK
     Route: 048
     Dates: start: 20180614

REACTIONS (3)
  - Non-Hodgkin^s lymphoma metastatic [Unknown]
  - Leukocytosis [Not Recovered/Not Resolved]
  - Neutrophil count increased [Unknown]

NARRATIVE: CASE EVENT DATE: 20201021
